FAERS Safety Report 8380118 (Version 2)
Quarter: 2012Q4

REPORT INFORMATION
  Report Type: Report from Study
  Country: US (occurrence: US)
  Receive Date: 20120129
  Receipt Date: 20121018
  Transmission Date: 20130627
  Serious: Yes (Other)
  Sender: FDA-Public Use
  Company Number: US-ABBOTT-11P-163-0870208-00

PATIENT
  Age: 44 Year
  Sex: Female

DRUGS (16)
  1. HUMIRA [Suspect]
     Indication: CROHN^S DISEASE
     Dosage: Loading dose
     Dates: start: 20111017, end: 20111017
  2. HUMIRA [Suspect]
     Dates: start: 20111031, end: 20111031
  3. HUMIRA [Suspect]
  4. CYANOCOBALAMIN-TANNIN COMPLEX [Concomitant]
     Indication: PRODUCT USED FOR UNKNOWN INDICATION
  5. OTHER MEDICATIONS [Concomitant]
     Indication: PRODUCT USED FOR UNKNOWN INDICATION
  6. SYNTHROID [Concomitant]
     Indication: HYPOTHYROIDISM
     Dosage: Daily
  7. COZAAR [Concomitant]
     Indication: HYPERTENSION
     Dosage: 50mg daily
  8. ADVAIR UNSPEC [Concomitant]
     Indication: ASTHMA
     Dosage: 100/50mg
  9. VENTOLIN [Concomitant]
     Indication: ASTHMA
  10. PAXIL [Concomitant]
     Indication: DEPRESSION
     Dosage: 40mg daily
  11. PAXIL [Concomitant]
     Indication: ANXIETY
  12. RESTASIS [Concomitant]
     Indication: DRY EYE
     Dosage: 1 drop to each eye twice a day
  13. HYDROCODONE [Concomitant]
     Indication: ARTHRALGIA
  14. VIT B12 [Concomitant]
     Indication: PRODUCT USED FOR UNKNOWN INDICATION
     Dosage: Monthly
     Route: 050
  15. LIDODERM [Concomitant]
     Indication: PAIN
     Dosage: Patch
  16. FLECTOR [Concomitant]
     Indication: PAIN
     Dosage: Patch

REACTIONS (24)
  - Thyroiditis subacute [Unknown]
  - Carpal tunnel syndrome [Unknown]
  - Trigger finger [Unknown]
  - Joint range of motion decreased [Unknown]
  - Fatigue [Not Recovered/Not Resolved]
  - Unevaluable event [Unknown]
  - Fatigue [Unknown]
  - Vaginal disorder [Unknown]
  - Fatigue [Unknown]
  - Intestinal obstruction [Unknown]
  - Vaginal fistula [Unknown]
  - Rectocele [Unknown]
  - Injection site pain [Not Recovered/Not Resolved]
  - Injection site bruising [Unknown]
  - Injection site erythema [Unknown]
  - Diarrhoea [Not Recovered/Not Resolved]
  - Nasopharyngitis [Recovered/Resolved]
  - Oropharyngeal pain [Not Recovered/Not Resolved]
  - Pancreatitis [Unknown]
  - Pain [Unknown]
  - Crohn^s disease [Unknown]
  - Arthritis [Unknown]
  - Vomiting [Unknown]
  - Hepatic enzyme increased [Unknown]
